FAERS Safety Report 26111705 (Version 1)
Quarter: 2025Q4

REPORT INFORMATION
  Report Type: Spontaneous
  Country: CN (occurrence: CN)
  Receive Date: 20251202
  Receipt Date: 20251202
  Transmission Date: 20260118
  Serious: Yes (Hospitalization)
  Sender: ACCORD
  Company Number: None

PATIENT
  Sex: Female
  Weight: 58 kg

DRUGS (3)
  1. TRASTUZUMAB [Suspect]
     Active Substance: TRASTUZUMAB
     Indication: Breast cancer
     Dosage: 300 MILLIGRAM, QD, IV DRIP, STRENGTH: 150 MG
     Route: 042
     Dates: start: 20251105, end: 20251105
  2. DOCETAXEL [Suspect]
     Active Substance: DOCETAXEL
     Indication: Breast cancer
     Dosage: 160 MILLIGRAM, QD, IV DRIP
     Route: 042
     Dates: start: 20251105, end: 20251105
  3. PIRARUBICIN [Suspect]
     Active Substance: PIRARUBICIN
     Indication: Breast cancer
     Dosage: 60 MILLIGRAM, QD, IV DRIP
     Route: 042
     Dates: start: 20251105, end: 20251105

REACTIONS (1)
  - Myelosuppression [Recovering/Resolving]
